FAERS Safety Report 6721161-5 (Version None)
Quarter: 2010Q2

REPORT INFORMATION
  Report Type: 
  Country: None (occurrence: None)
  Receive Date: 20100512
  Receipt Date: 20100512
  Transmission Date: 20101027
  Serious: Yes (Death)
  Sender: FDA-Public Use
  Company Number: None

PATIENT
  Sex: Male
  Weight: 14.0615 kg

DRUGS (2)
  1. CHILDREN'S MOTRIN [Suspect]
     Indication: PYREXIA
     Dosage: 1 TEASPOON PO 1-2 DOSES PRIOR TO EVENT
     Route: 048
  2. CHILDREN'S MOTRIN [Suspect]
     Indication: UPPER RESPIRATORY TRACT INFECTION
     Dosage: 1 TEASPOON PO 1-2 DOSES PRIOR TO EVENT
     Route: 048

REACTIONS (1)
  - PRODUCT QUALITY ISSUE [None]
